FAERS Safety Report 4412929-9 (Version None)
Quarter: 2004Q3

REPORT INFORMATION
  Report Type: 
  Country: None (occurrence: None)
  Receive Date: 20040728
  Receipt Date: 20040716
  Transmission Date: 20050211
  Serious: Yes (Death)
  Sender: FDA-Public Use
  Company Number: 2004S1002104

PATIENT
  Age: 62 Year
  Sex: Male

DRUGS (5)
  1. CLOZAPINE [Suspect]
     Indication: SCHIZOPHRENIA
     Dosage: 50MG Q AM, 100MG 2PM , 250MG Q HS, ORAL
     Route: 048
     Dates: start: 20040426
  2. SENNA [Concomitant]
  3. MULTIVITAMIN [Concomitant]
  4. DIVALPROEX SODIUM [Concomitant]
  5. LORAZEPAM [Concomitant]

REACTIONS (1)
  - DEATH [None]
